FAERS Safety Report 17377443 (Version 1)
Quarter: 2020Q1

REPORT INFORMATION
  Report Type: Spontaneous
  Country: JP (occurrence: JP)
  Receive Date: 20200206
  Receipt Date: 20200206
  Transmission Date: 20200409
  Serious: Yes (Death, Other)
  Sender: FDA-Public Use
  Company Number: JP-PFIZER INC-2020038587

PATIENT
  Age: 15 Year
  Sex: Male

DRUGS (4)
  1. BEVACIZUMAB. [Concomitant]
     Active Substance: BEVACIZUMAB
     Indication: COLORECTAL CANCER STAGE IV
     Dosage: UNK, CYCLIC
  2. OXALIPLATIN. [Suspect]
     Active Substance: OXALIPLATIN
     Indication: COLORECTAL CANCER STAGE IV
     Dosage: UNK, CYCLIC (AT 10 CYCLES)
  3. FLUOROURACIL. [Concomitant]
     Active Substance: FLUOROURACIL
     Indication: COLORECTAL CANCER STAGE IV
     Dosage: UNK, CYCLIC
  4. FOLINIC ACID [Concomitant]
     Active Substance: LEUCOVORIN
     Indication: COLORECTAL CANCER STAGE IV
     Dosage: UNK, CYCLIC

REACTIONS (3)
  - Drug hypersensitivity [Unknown]
  - Rash [Unknown]
  - Pneumonia [Fatal]
